FAERS Safety Report 5085985-5 (Version None)
Quarter: 2006Q3

REPORT INFORMATION
  Report Type: 
  Country: None (occurrence: None)
  Receive Date: 20060817
  Receipt Date: 20060803
  Transmission Date: 20061208
  Serious: Yes (Hospitalization)
  Sender: FDA-Public Use
  Company Number: 2004238693CA

PATIENT
  Age: 67 Year
  Sex: Female
  Weight: 74 kg

DRUGS (9)
  1. SUTENT [Suspect]
     Indication: GASTROINTESTINAL STROMAL TUMOUR
     Dosage: 37.5 MG (CYCLIC), ORAL
     Route: 048
     Dates: start: 20041006, end: 20041008
  2. LOSEC (OMEPRAZOLE) [Concomitant]
  3. LEVOTHYROXINE SODIUM [Concomitant]
  4. LENOLTECH NO 3 (CAFFEINE, CODEINE, PARACETAMOL) [Concomitant]
  5. POTASSIUM (POTASSIUM) [Concomitant]
  6. NITROLINGUAL (GLYCERYL TRINITRATE) [Concomitant]
  7. LIPITOR [Concomitant]
  8. ALPRAZOLAM [Concomitant]
  9. ALTACE [Concomitant]

REACTIONS (21)
  - ACUTE CORONARY SYNDROME [None]
  - AMNESIA [None]
  - ASTHENIA [None]
  - CARDIOMYOPATHY [None]
  - CHOLECYSTITIS ACUTE [None]
  - DILATATION ATRIAL [None]
  - DILATATION VENTRICULAR [None]
  - DYSPNOEA PAROXYSMAL NOCTURNAL [None]
  - EMBOLISM [None]
  - FACIAL PAIN [None]
  - FATIGUE [None]
  - MITRAL VALVE INCOMPETENCE [None]
  - MUSCLE FATIGUE [None]
  - MUSCLE TWITCHING [None]
  - OEDEMA PERIPHERAL [None]
  - ORTHOPNOEA [None]
  - PAIN [None]
  - PLATELET COUNT DECREASED [None]
  - PULMONARY HYPERTENSION [None]
  - PULMONARY OEDEMA [None]
  - WHITE BLOOD CELL COUNT DECREASED [None]
